FAERS Safety Report 6933365-7 (Version None)
Quarter: 2010Q3

REPORT INFORMATION
  Report Type: 
  Country: None (occurrence: None)
  Receive Date: 20100820
  Receipt Date: 20100816
  Transmission Date: 20110219
  Serious: Yes (Hospitalization, Other)
  Sender: FDA-Public Use
  Company Number: US-ASTRAZENECA-2007UW05478

PATIENT
  Age: 712 Month
  Sex: Female
  Weight: 79.4 kg

DRUGS (34)
  1. SEROQUEL [Suspect]
     Indication: DEPRESSION
     Route: 048
     Dates: start: 20020101, end: 20070101
  2. SEROQUEL [Suspect]
     Indication: INSOMNIA
     Route: 048
     Dates: start: 20020101, end: 20070101
  3. SEROQUEL [Suspect]
     Indication: OBSESSIVE-COMPULSIVE DISORDER
     Route: 048
     Dates: start: 20020101, end: 20070101
  4. SEROQUEL [Suspect]
     Route: 048
     Dates: start: 20020401
  5. SEROQUEL [Suspect]
     Route: 048
     Dates: start: 20020401
  6. SEROQUEL [Suspect]
     Route: 048
     Dates: start: 20020401
  7. SEROQUEL [Suspect]
     Dosage: 25 - 300 MG
     Route: 048
     Dates: start: 20020416, end: 20061026
  8. SEROQUEL [Suspect]
     Dosage: 25 - 300 MG
     Route: 048
     Dates: start: 20020416, end: 20061026
  9. SEROQUEL [Suspect]
     Dosage: 25 - 300 MG
     Route: 048
     Dates: start: 20020416, end: 20061026
  10. ZYPREXA [Concomitant]
     Dates: start: 19961007, end: 20030131
  11. ZYPREXA [Concomitant]
     Dosage: 2.5 MG TO 10 MG
     Dates: start: 19990101, end: 20020101
  12. RISPERDAL [Concomitant]
     Indication: MAJOR DEPRESSION
     Dates: start: 20000101, end: 20000101
  13. RISPERDAL [Concomitant]
     Dates: start: 19900101
  14. LOTREL [Concomitant]
  15. SYNTHROID [Concomitant]
  16. LEXAPRO [Concomitant]
     Dates: start: 20040101, end: 20060101
  17. KLONOPIN [Concomitant]
  18. NAPROSYN [Concomitant]
  19. WELLBUTRIN [Concomitant]
     Dosage: 150 MG -450 MG
     Dates: start: 20040101, end: 20060101
  20. RELAFEN [Concomitant]
  21. GLUCOPHAGE [Concomitant]
  22. ULTRAM [Concomitant]
  23. DESYREL [Concomitant]
  24. CYMBALTA [Concomitant]
  25. CRESTOR [Concomitant]
  26. LOPRESSOR [Concomitant]
  27. LYRICA [Concomitant]
  28. ZOCOR [Concomitant]
  29. ABILIFY [Concomitant]
     Dates: start: 19900101, end: 20040101
  30. CLOZARIL [Concomitant]
  31. CELEXA [Concomitant]
     Dates: start: 19990101, end: 20020101
  32. CLONAZEPAM [Concomitant]
     Dosage: 0.5 MG-1 MG
     Dates: start: 20040101, end: 20060101
  33. PAXIL [Concomitant]
     Dates: start: 20020101, end: 20030101
  34. TRAZODONE HCL [Concomitant]
     Dates: start: 20000101, end: 20040101

REACTIONS (25)
  - ABDOMINAL PAIN [None]
  - ARTHRITIS [None]
  - BLINDNESS [None]
  - BREAST MASS [None]
  - CARDIAC DISORDER [None]
  - CHEST PAIN [None]
  - CHOLELITHIASIS [None]
  - CRYING [None]
  - DEAFNESS [None]
  - DIABETES MELLITUS [None]
  - DIABETIC NEUROPATHY [None]
  - DIARRHOEA [None]
  - DYSPNOEA [None]
  - FATIGUE [None]
  - INTERVERTEBRAL DISC PROTRUSION [None]
  - MAJOR DEPRESSION [None]
  - MALAISE [None]
  - MYOCARDIAL ISCHAEMIA [None]
  - NECK PAIN [None]
  - NEUROPATHY PERIPHERAL [None]
  - OBSESSIVE-COMPULSIVE DISORDER [None]
  - PANCREATITIS [None]
  - PANIC ATTACK [None]
  - SUICIDAL IDEATION [None]
  - VULVOVAGINAL MYCOTIC INFECTION [None]
